FAERS Safety Report 19135308 (Version 5)
Quarter: 2021Q2

REPORT INFORMATION
  Report Type: Report from Study
  Country: US (occurrence: US)
  Receive Date: 20210414
  Receipt Date: 20210526
  Transmission Date: 20210717
  Serious: Yes (Death, Hospitalization, Other)
  Sender: FDA-Public Use
  Company Number: US-JNJFOC-20210412423

PATIENT
  Age: 67 Year
  Sex: Female
  Weight: 46.8 kg

DRUGS (2)
  1. EPOPROSTENOL SODIUM. [Suspect]
     Active Substance: EPOPROSTENOL SODIUM
     Indication: PULMONARY HYPERTENSION
     Route: 042
  2. EPOPROSTENOL SODIUM. [Suspect]
     Active Substance: EPOPROSTENOL SODIUM
     Route: 042

REACTIONS (8)
  - Dyspnoea [Unknown]
  - Hypothermia [Unknown]
  - Gastrointestinal disorder [Unknown]
  - Hypoglycaemia [Unknown]
  - Death [Fatal]
  - Weight decreased [Unknown]
  - Confusional state [Unknown]
  - Clostridium difficile infection [Unknown]

NARRATIVE: CASE EVENT DATE: 202104
